FAERS Safety Report 9621295 (Version 3)
Quarter: 2013Q4

REPORT INFORMATION
  Report Type: Spontaneous
  Country: JP (occurrence: JP)
  Receive Date: 20131015
  Receipt Date: 20131111
  Transmission Date: 20140711
  Serious: Yes (Hospitalization, Other)
  Sender: FDA-Public Use
  Company Number: PHHY2013JP107889

PATIENT
  Age: 62 Year
  Sex: Female

DRUGS (1)
  1. NEORAL [Suspect]
     Indication: RENAL TRANSPLANT
     Dosage: 100 MG, DAILY
     Route: 048
     Dates: start: 200704

REACTIONS (2)
  - Lower limb fracture [Recovering/Resolving]
  - Fall [Unknown]
